FAERS Safety Report 22302818 (Version 1)
Quarter: 2023Q2

REPORT INFORMATION
  Report Type: Spontaneous
  Country: US (occurrence: None)
  Receive Date: 20230510
  Receipt Date: 20230510
  Transmission Date: 20230721
  Serious: No
  Sender: FDA-Public Use
  Company Number: 2023A100373

PATIENT

DRUGS (1)
  1. TEZSPIRE [Suspect]
     Active Substance: TEZEPELUMAB-EKKO

REACTIONS (1)
  - Blood immunoglobulin E decreased [Unknown]
